FAERS Safety Report 7543579-3 (Version None)
Quarter: 2011Q2

REPORT INFORMATION
  Report Type: 
  Country: None (occurrence: None)
  Receive Date: 20110613
  Receipt Date: 20010125
  Transmission Date: 20111010
  Serious: Yes (Life-Threatening)
  Sender: FDA-Public Use
  Company Number: PHBS2001CA01186

PATIENT
  Sex: Female

DRUGS (1)
  1. CLOZARIL [Suspect]
     Indication: SCHIZOPHRENIA
     Dosage: 25 MG, QID
     Route: 048
     Dates: start: 20000815

REACTIONS (4)
  - DYSPNOEA [None]
  - UPPER RESPIRATORY TRACT INFECTION [None]
  - CARDIOMEGALY [None]
  - CONSTIPATION [None]
